FAERS Safety Report 4387886-4 (Version None)
Quarter: 2004Q2

REPORT INFORMATION
  Report Type: 
  Country: None (occurrence: None)
  Receive Date: 20040607
  Receipt Date: 20031021
  Transmission Date: 20050107
  Serious: Yes (Hospitalization)
  Sender: FDA-Public Use
  Company Number: 349670

PATIENT
  Age: 15 Year

DRUGS (1)
  1. ACCUTANE [Suspect]
     Dosage: 40 MG PER DAY ORAL
     Route: 048
     Dates: start: 20030716

REACTIONS (1)
  - CONVULSION [None]
